FAERS Safety Report 20480648 (Version 9)
Quarter: 2023Q4

REPORT INFORMATION
  Report Type: Spontaneous
  Country: CA (occurrence: CA)
  Receive Date: 20220216
  Receipt Date: 20231130
  Transmission Date: 20240110
  Serious: Yes (Hospitalization, Other)
  Sender: FDA-Public Use
  Company Number: CA-PFIZER INC-202200046309

PATIENT
  Age: 81 Year
  Sex: Female
  Weight: 68 kg

DRUGS (18)
  1. RUXIENCE [Suspect]
     Active Substance: RITUXIMAB-PVVR
     Indication: Granulomatosis with polyangiitis
     Dosage: 1 G, X 2 (DAY 1 AND 15)
     Route: 042
  2. RUXIENCE [Suspect]
     Active Substance: RITUXIMAB-PVVR
     Indication: Microscopic polyangiitis
     Dosage: 1 G, (DAY 1 AND 15)
     Route: 042
     Dates: start: 20220204
  3. RUXIENCE [Suspect]
     Active Substance: RITUXIMAB-PVVR
     Dosage: 1 G, (DAY 1 AND 15)
     Route: 042
     Dates: start: 20220204, end: 20220404
  4. RUXIENCE [Suspect]
     Active Substance: RITUXIMAB-PVVR
     Dosage: 1 G, (DAY 1 AND 15)
     Route: 042
     Dates: start: 20220321, end: 20220321
  5. RUXIENCE [Suspect]
     Active Substance: RITUXIMAB-PVVR
     Dosage: 1 G, (DAY 1 AND 15)
     Route: 042
     Dates: start: 20220404
  6. RUXIENCE [Suspect]
     Active Substance: RITUXIMAB-PVVR
     Dosage: 500 MG
     Route: 042
     Dates: start: 20221118, end: 20221118
  7. RUXIENCE [Suspect]
     Active Substance: RITUXIMAB-PVVR
     Dosage: 500 MG, EVERY (Q) 6 MONTHS
     Route: 040
     Dates: start: 20230529
  8. RUXIENCE [Suspect]
     Active Substance: RITUXIMAB-PVVR
     Dosage: 500 MG, DAY 1
     Route: 042
     Dates: start: 20231123
  9. ACETAMINOPHEN [Concomitant]
     Active Substance: ACETAMINOPHEN
     Indication: Premedication
     Dosage: 650 MG
     Route: 048
     Dates: start: 20220204, end: 20220204
  10. AZATHIOPRINE [Concomitant]
     Active Substance: AZATHIOPRINE
     Dosage: 75 MG, 2X/DAY
     Route: 048
     Dates: start: 2020
  11. COVID-19 VACCINE [Concomitant]
     Indication: COVID-19 immunisation
     Dosage: UNK
  12. DIPHENHYDRAMINE [Concomitant]
     Active Substance: DIPHENHYDRAMINE
     Dosage: 50 MG, UNK
     Route: 048
     Dates: start: 20220204, end: 20220204
  13. INFLUENZA VIRUS VACCINE [Concomitant]
     Active Substance: INFLUENZA VIRUS VACCINE
     Indication: Immunisation
     Dosage: UNK
  14. IMURAN [Concomitant]
     Active Substance: AZATHIOPRINE
     Dosage: 75 MG, FREQUENCY: UNKNOWN
     Route: 065
     Dates: start: 202206
  15. METHYLPREDNISOLONE [Concomitant]
     Active Substance: METHYLPREDNISOLONE
     Dosage: 100 MG, UNK
     Route: 042
     Dates: start: 20220204, end: 20220204
  16. PREDNISONE [Concomitant]
     Active Substance: PREDNISONE
     Dosage: 5 MG, UNK
     Dates: start: 2020
  17. PREDNISONE [Concomitant]
     Active Substance: PREDNISONE
     Dosage: 30 MG, UNK
     Dates: start: 2020
  18. PREDNISONE [Concomitant]
     Active Substance: PREDNISONE
     Dosage: UNK

REACTIONS (11)
  - Anaphylactic reaction [Unknown]
  - Respiratory distress [Unknown]
  - Blood pressure systolic increased [Unknown]
  - Heart rate irregular [Unknown]
  - Cough [Unknown]
  - Dyspnoea [Recovered/Resolved]
  - Flushing [Unknown]
  - Off label use [Unknown]
  - Off label use [Unknown]
  - Intentional product use issue [Unknown]
  - Inappropriate schedule of product administration [Unknown]

NARRATIVE: CASE EVENT DATE: 20220101
